FAERS Safety Report 8620118 (Version 4)
Quarter: 2012Q4

REPORT INFORMATION
  Report Type: 
  Country: JP (occurrence: JP)
  Receive Date: 20120618
  Receipt Date: 20121008
  Transmission Date: 20130627
  Serious: No
  Sender: FDA-Public Use
  Company Number: JP-GLAXOSMITHKLINE-B0808366A

PATIENT
  Age: 17 None
  Sex: Male

DRUGS (7)
  1. SERETIDE (50MCG/100MCG) [Suspect]
     Indication: ASTHMA
     Dosage: 100MCG Twice per day
     Route: 055
     Dates: start: 20111024, end: 201205
  2. SULTANOL [Concomitant]
     Indication: ASTHMA
     Route: 055
     Dates: start: 20120213
  3. KIPRES [Concomitant]
     Indication: ASTHMA
     Dosage: 10MG Per day
     Route: 048
     Dates: start: 20111024
  4. MEDICON [Concomitant]
     Indication: UPPER RESPIRATORY TRACT INFLAMMATION
     Dosage: 15MG Three times per day
     Route: 048
     Dates: start: 20111024, end: 20111031
  5. MEDICON [Concomitant]
     Indication: UPPER RESPIRATORY TRACT INFLAMMATION
     Dosage: 15MG Three times per day
     Route: 048
     Dates: start: 20120213, end: 20120217
  6. C-CYSTEN [Concomitant]
     Indication: PRODUCTIVE COUGH
     Dosage: 250MG Three times per day
     Route: 048
     Dates: start: 20111024, end: 20111031
  7. CLARITHROMYCIN [Concomitant]
     Indication: UPPER RESPIRATORY TRACT INFLAMMATION
     Dosage: 200MG Twice per day
     Route: 048
     Dates: start: 20120213, end: 20120217

REACTIONS (3)
  - Cataract [Unknown]
  - Visual acuity reduced [Unknown]
  - Myopia [Unknown]
